FAERS Safety Report 7097687-4 (Version None)
Quarter: 2010Q4

REPORT INFORMATION
  Report Type: 
  Country: None (occurrence: None)
  Receive Date: 20101112
  Receipt Date: 20101101
  Transmission Date: 20110411
  Serious: No
  Sender: FDA-Public Use
  Company Number: US-BIOGENIDEC-2010BI038626

PATIENT
  Sex: Female
  Weight: 64 kg

DRUGS (11)
  1. AVONEX [Suspect]
     Indication: MULTIPLE SCLEROSIS
     Route: 030
     Dates: start: 19980101
  2. AMPYRA [Concomitant]
     Indication: GAIT DISTURBANCE
     Dates: start: 20100830
  3. BACLOFEN [Concomitant]
  4. VESICARE [Concomitant]
  5. IMMUNE GLOBULIN NOS [Concomitant]
  6. PROVIGIL [Concomitant]
  7. VITAMIN D [Concomitant]
  8. ASCORBIC ACID [Concomitant]
  9. AMBIEN CR [Concomitant]
  10. OXYBUTYNIN [Concomitant]
  11. PRIVIGEN [Concomitant]
     Dates: start: 20020101

REACTIONS (9)
  - AMENORRHOEA [None]
  - ARTHRALGIA [None]
  - DIARRHOEA [None]
  - FATIGUE [None]
  - MUSCULAR WEAKNESS [None]
  - OEDEMA PERIPHERAL [None]
  - OROPHARYNGEAL PAIN [None]
  - PYREXIA [None]
  - RHINALGIA [None]
